FAERS Safety Report 6032712-0 (Version None)
Quarter: 2009Q1

REPORT INFORMATION
  Report Type: 
  Country: None (occurrence: None)
  Receive Date: 20090107
  Receipt Date: 20090107
  Transmission Date: 20090719
  Serious: Yes (Other)
  Sender: FDA-Public Use
  Company Number: None

PATIENT
  Age: 46 Year
  Sex: Female
  Weight: 109.7705 kg

DRUGS (1)
  1. MICARDIS HCT [Suspect]
     Indication: HYPERTENSION
     Dosage: 1 TABLET DAILY PO
     Route: 048
     Dates: start: 20081025, end: 20081224

REACTIONS (10)
  - DISEASE RECURRENCE [None]
  - EAR PAIN [None]
  - FLUSHING [None]
  - HYPERHIDROSIS [None]
  - INFECTION [None]
  - INFLAMMATION [None]
  - NASAL CONGESTION [None]
  - OEDEMA PERIPHERAL [None]
  - PYREXIA [None]
  - UPPER RESPIRATORY TRACT CONGESTION [None]
